FAERS Safety Report 4888943-6 (Version None)
Quarter: 2006Q1

REPORT INFORMATION
  Report Type: 
  Country: None (occurrence: None)
  Receive Date: 20060123
  Receipt Date: 20050729
  Transmission Date: 20060701
  Serious: Yes (Hospitalization, Disabling)
  Sender: FDA-Public Use
  Company Number: US-MERCK-0508USA00448

PATIENT
  Age: 71 Year
  Sex: Male
  Weight: 102 kg

DRUGS (7)
  1. VIOXX [Suspect]
     Indication: SPORTS INJURY
     Route: 048
     Dates: start: 20000301, end: 20030801
  2. LIPITOR [Concomitant]
     Route: 065
  3. ZETIA [Concomitant]
     Route: 065
  4. ATENOLOL [Concomitant]
     Route: 065
  5. ASPIRIN [Concomitant]
     Route: 048
  6. VITAMIN E [Concomitant]
     Route: 065
  7. FOLIC ACID [Concomitant]
     Route: 065

REACTIONS (5)
  - CEREBROVASCULAR ACCIDENT [None]
  - DIABETES MELLITUS [None]
  - DYSPHAGIA [None]
  - GRAND MAL CONVULSION [None]
  - MYOCARDIAL INFARCTION [None]
